FAERS Safety Report 23244524 (Version 3)
Quarter: 2023Q4

REPORT INFORMATION
  Report Type: Spontaneous
  Country: AT (occurrence: None)
  Receive Date: 20231130
  Receipt Date: 20231227
  Transmission Date: 20240110
  Serious: Yes (Hospitalization)
  Sender: FDA-Public Use
  Company Number: 2023A267542

PATIENT
  Age: 18932 Day
  Sex: Male
  Weight: 88 kg

DRUGS (7)
  1. TEZSPIRE [Suspect]
     Active Substance: TEZEPELUMAB-EKKO
     Indication: Asthma
     Route: 058
     Dates: start: 20230202
  2. ATORVASTATIN [Concomitant]
     Active Substance: ATORVASTATIN
     Dosage: HLP) 0-0-1
     Route: 048
     Dates: start: 202304
  3. EZETIMIBE [Concomitant]
     Active Substance: EZETIMIBE
     Dosage: (HLP) 1-0-0
     Dates: start: 20230623
  4. FOSTER [Concomitant]
     Active Substance: BECLOMETHASONE\FORMOTEROL
     Indication: Asthma
     Dosage: 200/6, DOSE/FREQUENCY: 200/6?GR ROUTE P.L. ONGOING
  5. FOSTER [Concomitant]
     Active Substance: BECLOMETHASONE\FORMOTEROL
     Indication: Asthma
     Dosage: 100/6?GR ROUTE P.L. ONGOING
  6. SPIRIVA RESPIMAT [Concomitant]
     Active Substance: TIOTROPIUM BROMIDE
     Indication: Asthma
     Dosage: DOSE/FREQUENCY: 2.5?GR ROUTE P.L. ONGOING
  7. CLOPIDOGREL [Concomitant]
     Active Substance: CLOPIDOGREL BISULFATE
     Indication: Coronary artery disease
     Dosage: DOSE/FREQUENCY: 75MGR ROUTE P.O. ONGOING
     Route: 048

REACTIONS (1)
  - Diverticulitis [Recovered/Resolved]

NARRATIVE: CASE EVENT DATE: 20230930
